FAERS Safety Report 7771189-1 (Version None)
Quarter: 2011Q3

REPORT INFORMATION
  Report Type: 
  Country: None (occurrence: None)
  Receive Date: 20110922
  Receipt Date: 20110701
  Transmission Date: 20111222
  Serious: No
  Sender: FDA-Public Use
  Company Number: US-ASTRAZENECA-2011SE39737

PATIENT
  Age: 56 Year
  Sex: Male
  Weight: 89.8 kg

DRUGS (6)
  1. SEROQUEL XR [Suspect]
     Indication: BIPOLAR DISORDER
     Route: 048
  2. EFFEXOR [Concomitant]
  3. DIAZEPAM [Concomitant]
  4. LANTUS [Concomitant]
     Dosage: AT NIGHT
  5. METFORMIN [Concomitant]
     Dosage: BID
  6. DEPAKOTE [Concomitant]

REACTIONS (4)
  - TREMOR [None]
  - POOR QUALITY SLEEP [None]
  - MENTAL IMPAIRMENT [None]
  - DRUG DOSE OMISSION [None]
